FAERS Safety Report 8643644 (Version 2)
Quarter: 2012Q4

REPORT INFORMATION
  Report Type: 
  Country: US (occurrence: US)
  Receive Date: 20120629
  Receipt Date: 20121005
  Transmission Date: 20130627
  Serious: Yes (Other)
  Sender: FDA-Public Use
  Company Number: US-PFIZER INC-2012155454

PATIENT
  Age: 61 Year
  Sex: Female
  Weight: 73.47 kg

DRUGS (14)
  1. PREMARIN [Suspect]
     Indication: HORMONE REPLACEMENT THERAPY
     Dosage: 1.25 mg, 1x/day
     Dates: start: 1987
  2. PREMARIN [Suspect]
     Dosage: 0.9 mg, 1x/day
     Dates: start: 1987
  3. LIPITOR [Suspect]
     Indication: BLOOD CHOLESTEROL INCREASED
     Dosage: 20 mg, 1x/day
     Route: 048
  4. ZOLOFT [Suspect]
     Indication: DEPRESSION
     Dosage: 100 mg, 1x/day
  5. LYRICA [Suspect]
     Indication: FIBROMYALGIA
     Dosage: 50 mg, 2x/day
     Route: 048
     Dates: start: 201207
  6. LYRICA [Suspect]
     Indication: CARPAL TUNNEL SYNDROME
  7. MOBIC [Suspect]
     Indication: FIBROMYALGIA
     Dosage: 7.5 mg, 2x/day
     Dates: start: 2005
  8. INDERAL-LA [Concomitant]
     Indication: MITRAL VALVE PROLAPSE
     Dosage: 60 mg, daily
  9. INDERAL-LA [Concomitant]
     Indication: RHEUMATIC HEART DISEASE
  10. INDERAL-LA [Concomitant]
     Indication: CARDIAC DISORDER
  11. INDERAL-LA [Concomitant]
     Indication: BLOOD PRESSURE ABNORMAL
  12. INDERAL-LA [Concomitant]
     Indication: HEART RATE INCREASED
  13. FLEXERIL [Concomitant]
     Indication: MYALGIA
     Dosage: 10 mg, 2x/day
  14. XANAX [Concomitant]
     Indication: NERVOUS SYSTEM DISORDER
     Dosage: 1 mg, 2x/day

REACTIONS (7)
  - Gastric disorder [Unknown]
  - Condition aggravated [Unknown]
  - Musculoskeletal pain [Recovering/Resolving]
  - Breast mass [Unknown]
  - Fall [Unknown]
  - Headache [Recovering/Resolving]
  - Sneezing [Unknown]
